FAERS Safety Report 5732085-4 (Version None)
Quarter: 2008Q2

REPORT INFORMATION
  Report Type: 
  Country: None (occurrence: None)
  Receive Date: 20080506
  Receipt Date: 20080421
  Transmission Date: 20081010
  Serious: Yes (Other)
  Sender: FDA-Public Use
  Company Number: 2008035568

PATIENT
  Sex: Female

DRUGS (2)
  1. FRAGMIN [Suspect]
     Dosage: SUBCUTANEOUS
     Route: 058
  2. ANALGESICS (ANALGESICS) [Concomitant]

REACTIONS (1)
  - BLINDNESS [None]
